FAERS Safety Report 6027536-4 (Version None)
Quarter: 2009Q1

REPORT INFORMATION
  Report Type: 
  Country: None (occurrence: None)
  Receive Date: 20090105
  Receipt Date: 20081106
  Transmission Date: 20090719
  Serious: No
  Sender: FDA-Public Use
  Company Number: US-BAYER-200814158BCC

PATIENT
  Age: 17 Year
  Sex: Female

DRUGS (2)
  1. ALEVE [Suspect]
     Indication: SUICIDE ATTEMPT
     Dosage: TOTAL DAILY DOSE: 44000 MG  UNIT DOSE: 220 MG
     Route: 048
     Dates: start: 20081022
  2. ZYPREXA [Concomitant]
     Indication: DEPRESSION

REACTIONS (3)
  - ABDOMINAL PAIN UPPER [None]
  - DIZZINESS [None]
  - NAUSEA [None]
